FAERS Safety Report 8512857 (Version 2)
Quarter: 2012Q4

REPORT INFORMATION
  Report Type: 
  Country: US (occurrence: US)
  Receive Date: 20120413
  Receipt Date: 20121024
  Transmission Date: 20130627
  Serious: No
  Sender: FDA-Public Use
  Company Number: US-ASTRAZENECA-2011SE25174

PATIENT
  Age: 76 Year
  Sex: Female

DRUGS (2)
  1. NEXIUM [Suspect]
     Route: 048
  2. NEXIUM [Suspect]
     Dosage: TWO TIMES A DAY THIRTY MINUTES BEFORE BREAKFAST AND BEFORE DINNER
     Route: 048

REACTIONS (5)
  - Gastrooesophageal reflux disease [Unknown]
  - Diverticulitis [Unknown]
  - Gastrointestinal disorder [Unknown]
  - Muscle spasms [Unknown]
  - Drug dose omission [Unknown]
